FAERS Safety Report 9035111 (Version 1)
Quarter: 2013Q1

REPORT INFORMATION
  Report Type: Report from Study
  Country: US (occurrence: US)
  Receive Date: 20130129
  Receipt Date: 20130129
  Transmission Date: 20140127
  Serious: No
  Sender: FDA-Public Use
  Company Number: US-ABBOTT-12P-163-0893144-00

PATIENT
  Age: 29 Year
  Sex: Female

DRUGS (5)
  1. HUMIRA 40 MG/0.8 ML PEN [Suspect]
     Indication: CROHN^S DISEASE
     Dates: start: 20111229
  2. HUMIRA 40 MG/0.8 ML PEN [Suspect]
     Dosage: (80 MG, LOADING DOSE)
     Dates: start: 20120112
  3. BIRTH CONTROL PILL [Concomitant]
     Indication: PRODUCT USED FOR UNKNOWN INDICATION
     Dosage: PILL
  4. FEMOSTON [Concomitant]
     Indication: POLYCYSTIC OVARIES
     Route: 048
  5. PENTASA [Concomitant]
     Indication: CROHN^S DISEASE
     Route: 048

REACTIONS (2)
  - Hypersensitivity [Not Recovered/Not Resolved]
  - Sneezing [Unknown]
